FAERS Safety Report 7353938-X (Version None)
Quarter: 2011Q1

REPORT INFORMATION
  Report Type: 
  Country: None (occurrence: None)
  Receive Date: 20110315
  Receipt Date: 20110301
  Transmission Date: 20110831
  Serious: Yes (Other)
  Sender: FDA-Public Use
  Company Number: PHHY2011DE16532

PATIENT
  Sex: Male

DRUGS (1)
  1. RILATINE [Suspect]
     Dosage: UNK
     Route: 048
     Dates: start: 20110101

REACTIONS (1)
  - BLOOD CREATINE PHOSPHOKINASE INCREASED [None]
